FAERS Safety Report 9982809 (Version 1)
Quarter: 2014Q1

REPORT INFORMATION
  Report Type: Spontaneous
  Country: US (occurrence: None)
  Receive Date: 20140306
  Receipt Date: 20140306
  Transmission Date: 20141002
  Serious: Yes (Other)
  Sender: FDA-Public Use
  Company Number: None

PATIENT
  Age: 19 Year
  Sex: Female

DRUGS (2)
  1. QUETIAPINE [Suspect]
     Indication: SLEEP DISORDER
     Dosage: 1,QD,ORAL
     Route: 048
     Dates: start: 201401, end: 201402
  2. QUETIAPINE [Suspect]
     Indication: DEPRESSION
     Dosage: 1,QD,ORAL
     Route: 048
     Dates: start: 201401, end: 201402

REACTIONS (1)
  - Insomnia [None]
